FAERS Safety Report 5636409-8 (Version None)
Quarter: 2008Q1

REPORT INFORMATION
  Report Type: 
  Country: None (occurrence: None)
  Receive Date: 20080225
  Receipt Date: 20071214
  Transmission Date: 20080703
  Serious: No
  Sender: FDA-Public Use
  Company Number: A0699062A

PATIENT
  Sex: Female

DRUGS (2)
  1. VERAMYST [Suspect]
     Indication: DRUG USE FOR UNKNOWN INDICATION
     Route: 045
  2. HYDROCHLOROTHIAZIDE [Concomitant]

REACTIONS (2)
  - BLISTER [None]
  - HYPERSENSITIVITY [None]
